FAERS Safety Report 10890743 (Version 1)
Quarter: 2015Q1

REPORT INFORMATION
  Report Type: Spontaneous
  Country: US (occurrence: US)
  Receive Date: 20150305
  Receipt Date: 20150305
  Transmission Date: 20150721
  Serious: No
  Sender: FDA-Public Use
  Company Number: US-BIOGENIDEC-2015BI020095

PATIENT
  Sex: Female

DRUGS (7)
  1. ASA [Concomitant]
     Active Substance: ASPIRIN
  2. TECFIDERA [Suspect]
     Active Substance: DIMETHYL FUMARATE
     Indication: PRODUCT USED FOR UNKNOWN INDICATION
  3. ASA [Concomitant]
     Active Substance: ASPIRIN
  4. ASA [Concomitant]
     Active Substance: ASPIRIN
     Indication: HOT FLUSH
  5. ASA [Concomitant]
     Active Substance: ASPIRIN
  6. ASA [Concomitant]
     Active Substance: ASPIRIN
  7. ASA [Concomitant]
     Active Substance: ASPIRIN
     Indication: HOT FLUSH

REACTIONS (3)
  - Hot flush [Recovered/Resolved]
  - Pruritus [Recovered/Resolved]
  - Pain [Recovered/Resolved]
